FAERS Safety Report 15004803 (Version 1)
Quarter: 2018Q2

REPORT INFORMATION
  Report Type: Report from Study
  Country: IT (occurrence: IT)
  Receive Date: 20180613
  Receipt Date: 20180613
  Transmission Date: 20180711
  Serious: Yes (Other)
  Sender: FDA-Public Use
  Company Number: IT-PFIZER INC-2018234795

PATIENT
  Age: 51 Year
  Sex: Male

DRUGS (4)
  1. TAUXIB [Suspect]
     Active Substance: ETORICOXIB
     Indication: ARTHRITIS
     Dosage: 1 DF, SINGLE
     Route: 048
  2. VITAMIN B [Concomitant]
     Active Substance: VITAMIN B
  3. MEDROL [Suspect]
     Active Substance: METHYLPREDNISOLONE
     Indication: ARTHRITIS
     Dosage: 1 DF, SINGLE
     Route: 048
  4. ARAVA [Concomitant]
     Active Substance: LEFLUNOMIDE
     Indication: PSORIATIC ARTHROPATHY
     Dosage: 1 DF, ALTERNATE DAY
     Route: 048

REACTIONS (2)
  - Conjunctivitis [Unknown]
  - Urticaria [Unknown]

NARRATIVE: CASE EVENT DATE: 20180430
